FAERS Safety Report 24939979 (Version 1)
Quarter: 2025Q1

REPORT INFORMATION
  Report Type: Report from Study
  Country: US (occurrence: US)
  Receive Date: 20250207
  Receipt Date: 20250207
  Transmission Date: 20250409
  Serious: No
  Sender: STALLERGENES
  Company Number: US-STALCOR-2025-AER-00024

PATIENT
  Age: 14 Year
  Sex: Female
  Weight: 47.63 kg

DRUGS (10)
  1. PALFORZIA [Suspect]
     Active Substance: PEANUT
     Indication: Food allergy
     Dosage: REACTIVE DOSE LVL6: 4X20MG: MIX CONTENTS OF CAPSULES WELL WITH SEMISOLID FOOD AS DIRECTED AND CONSUM
     Route: 048
     Dates: start: 20241211
  2. PALFORZIA [Suspect]
     Active Substance: PEANUT
     Dosage: LVL 4 AT 20MG, DOSE REDUCED IN RESPONSE TO REPORTED AE^S (THERAPY START DATE CAPTURED IN FREE TEXT F
     Route: 048
  3. PALFORZIA [Suspect]
     Active Substance: PEANUT
     Route: 048
     Dates: start: 20241001
  4. PALFORZIA [Suspect]
     Active Substance: PEANUT
     Dosage: STARTED 40 MG (LAST TOLERATED DOSE LEVEL)
     Route: 048
     Dates: start: 20241126
  5. CALCIUM [Concomitant]
     Active Substance: CALCIUM
     Indication: Product used for unknown indication
  6. MAGNESIUM [Concomitant]
     Active Substance: MAGNESIUM
     Indication: Product used for unknown indication
  7. VITAMIN C [Concomitant]
     Active Substance: ASCORBIC ACID
     Indication: Product used for unknown indication
  8. CHOLECALCIFEROL [Concomitant]
     Active Substance: CHOLECALCIFEROL
     Indication: Product used for unknown indication
  9. ALBUTEROL [Concomitant]
     Active Substance: ALBUTEROL
     Indication: Asthma
  10. QVAR [Concomitant]
     Active Substance: BECLOMETHASONE DIPROPIONATE
     Indication: Asthma

REACTIONS (4)
  - Flushing [Recovered/Resolved]
  - Pruritus [Recovered/Resolved]
  - Hypersensitivity [Recovered/Resolved]
  - Abdominal pain upper [Recovered/Resolved]

NARRATIVE: CASE EVENT DATE: 20241223
